FAERS Safety Report 14441487 (Version 2)
Quarter: 2018Q2

REPORT INFORMATION
  Report Type: Spontaneous
  Country: US (occurrence: US)
  Receive Date: 20180125
  Receipt Date: 20180410
  Transmission Date: 20180711
  Serious: Yes (Other)
  Sender: FDA-Public Use
  Company Number: US-DSJP-DSU-2017-147279

PATIENT

DRUGS (1)
  1. BENICAR HCT [Suspect]
     Active Substance: HYDROCHLOROTHIAZIDE\OLMESARTAN MEDOXOMIL
     Indication: PRODUCT USED FOR UNKNOWN INDICATION
     Dosage: 40-25 MG, QD
     Route: 048
     Dates: start: 20080424, end: 20151231

REACTIONS (7)
  - Small intestinal obstruction [Unknown]
  - Gastritis [Not Recovered/Not Resolved]
  - Rectal haemorrhage [Unknown]
  - Rectal ulcer [Unknown]
  - Gastrooesophageal reflux disease [Unknown]
  - Inguinal hernia [Unknown]
  - Gastroenteritis [Unknown]

NARRATIVE: CASE EVENT DATE: 20090510
